FAERS Safety Report 6407715-4 (Version None)
Quarter: 2009Q4

REPORT INFORMATION
  Report Type: 
  Country: None (occurrence: None)
  Receive Date: 20091015
  Receipt Date: 20090930
  Transmission Date: 20100525
  Serious: Yes (Death)
  Sender: FDA-Public Use
  Company Number: 6054908

PATIENT
  Age: 39 Year
  Sex: Female

DRUGS (6)
  1. LEVOTHYROXINE SODIUM [Suspect]
     Indication: POST PROCEDURAL HYPOTHYROIDISM
     Dosage: 100 MCG ORAL, 112.5 MCG ORAL, 125 MCG ORAL
     Route: 048
     Dates: start: 20090301
  2. CORDARONE [Suspect]
     Indication: ARRHYTHMIA
     Dosage: ORAL
     Route: 048
  3. PERINDOPRIL ERBUMINE [Concomitant]
  4. CARVEDILOL [Concomitant]
  5. ALDACTONE [Concomitant]
  6. PREVISCAN (FLUINDIONE) [Concomitant]

REACTIONS (2)
  - CARDIAC ARREST [None]
  - DRUG INTERACTION [None]
